FAERS Safety Report 18735225 (Version 3)
Quarter: 2021Q1

REPORT INFORMATION
  Report Type: Spontaneous
  Country: US (occurrence: US)
  Receive Date: 20210113
  Receipt Date: 20210216
  Transmission Date: 20210419
  Serious: Yes (Other)
  Sender: FDA-Public Use
  Company Number: US-ASTRAZENECA-2021A000270

PATIENT
  Age: 65 Year
  Sex: Female
  Weight: 103.4 kg

DRUGS (2)
  1. BYDUREON BCISE [Suspect]
     Active Substance: EXENATIDE
     Indication: TYPE 2 DIABETES MELLITUS
     Dosage: 2.0MG UNKNOWN
     Route: 065
     Dates: start: 20200406
  2. LANTUS [Concomitant]
     Active Substance: INSULIN GLARGINE
     Dosage: 12 UNITS AT BEDTIME
     Route: 065

REACTIONS (7)
  - Device malfunction [Unknown]
  - Blood glucose increased [Not Recovered/Not Resolved]
  - Injection site erythema [Unknown]
  - Scab [Unknown]
  - Injection site haemorrhage [Recovering/Resolving]
  - Injection site extravasation [Unknown]
  - Incorrect dose administered by device [Unknown]
